FAERS Safety Report 5780686-X (Version None)
Quarter: 2008Q2

REPORT INFORMATION
  Report Type: 
  Country: None (occurrence: None)
  Receive Date: 20080620
  Receipt Date: 20080617
  Transmission Date: 20081010
  Serious: Yes (Other)
  Sender: FDA-Public Use
  Company Number: IN-BOEHRINGER INGELHEIM GMBH, GERMANY-2008-DE-03553GD

PATIENT
  Age: 27 Year
  Sex: Male

DRUGS (4)
  1. NEVIRAPINE [Suspect]
     Indication: HIV TEST POSITIVE
  2. LAMIVUDINE [Suspect]
     Indication: HIV TEST POSITIVE
  3. STAVUDINE [Suspect]
     Indication: HIV TEST POSITIVE
  4. FLUCONAZOLE [Concomitant]
     Indication: LYMPHADENITIS FUNGAL
     Route: 048

REACTIONS (3)
  - CRYPTOCOCCOSIS [None]
  - IMMUNE RECONSTITUTION SYNDROME [None]
  - INFECTION [None]
